FAERS Safety Report 12658435 (Version 1)
Quarter: 2016Q3

REPORT INFORMATION
  Report Type: Spontaneous
  Country: US (occurrence: None)
  Receive Date: 20160816
  Receipt Date: 20160816
  Transmission Date: 20161109
  Serious: Yes (Death, Hospitalization)
  Sender: FDA-Public Use
  Company Number: None

PATIENT
  Age: 79 Year
  Sex: Female
  Weight: 57.15 kg

DRUGS (5)
  1. PROLIA [Suspect]
     Active Substance: DENOSUMAB
     Indication: OSTEOPOROSIS
     Dosage: 1 INJECTION EVERY 6 MONTHS INFUSION
     Dates: start: 20140901, end: 20150817
  2. CALCIUM [Concomitant]
     Active Substance: CALCIUM
  3. SIMVASTATIN. [Concomitant]
     Active Substance: SIMVASTATIN
  4. JANUVIA [Concomitant]
     Active Substance: SITAGLIPTIN PHOSPHATE
  5. ONE A DAY VITAMINS [Concomitant]

REACTIONS (4)
  - Dyspnoea [None]
  - General physical health deterioration [None]
  - Blood glucose increased [None]
  - Upper respiratory fungal infection [None]

NARRATIVE: CASE EVENT DATE: 20150817
